FAERS Safety Report 22140583 (Version 1)
Quarter: 2023Q1

REPORT INFORMATION
  Report Type: Spontaneous
  Country: US (occurrence: None)
  Receive Date: 20230323
  Receipt Date: 20230323
  Transmission Date: 20230418
  Serious: No
  Sender: FDA-Public Use
  Company Number: None

PATIENT
  Age: 76 Year
  Sex: Male

DRUGS (1)
  1. PRALUENT [Suspect]
     Active Substance: ALIROCUMAB
     Indication: Hypercholesterolaemia
     Dosage: 75MG EVERY 2 WEEK SUBCUTANEOUS INJECTION
     Route: 058
     Dates: start: 20230124, end: 20230220

REACTIONS (2)
  - Influenza like illness [None]
  - Therapy cessation [None]

NARRATIVE: CASE EVENT DATE: 20230130
